FAERS Safety Report 25378823 (Version 1)
Quarter: 2025Q2

REPORT INFORMATION
  Report Type: Spontaneous
  Country: US (occurrence: US)
  Receive Date: 20250530
  Receipt Date: 20250530
  Transmission Date: 20250717
  Serious: No
  Sender: Haleon PLC
  Company Number: US-HALEON-2244619

PATIENT
  Age: 62 Year
  Sex: Male

DRUGS (2)
  1. NICORETTE CINNAMON SURGE [Suspect]
     Active Substance: NICOTINE
     Indication: Product used for unknown indication
  2. NICORETTE CINNAMON SURGE [Suspect]
     Active Substance: NICOTINE
     Indication: Product used for unknown indication

REACTIONS (2)
  - Anxiety [Unknown]
  - Cardiac disorder [Unknown]
